FAERS Safety Report 6621492-3 (Version None)
Quarter: 2010Q1

REPORT INFORMATION
  Report Type: 
  Country: None (occurrence: None)
  Receive Date: 20100309
  Receipt Date: 20100218
  Transmission Date: 20100710
  Serious: No
  Sender: FDA-Public Use
  Company Number: US-BIOGENIDEC-2010BI005493

PATIENT
  Age: 30 Year
  Sex: Male

DRUGS (2)
  1. AVONEX [Suspect]
     Indication: MULTIPLE SCLEROSIS
     Route: 030
     Dates: start: 20091101, end: 20091201
  2. AVONEX [Suspect]
     Route: 030
     Dates: start: 20091201

REACTIONS (4)
  - COUGH [None]
  - NASAL CONGESTION [None]
  - RHINORRHOEA [None]
  - SINUS CONGESTION [None]
